FAERS Safety Report 14545010 (Version 5)
Quarter: 2019Q3

REPORT INFORMATION
  Report Type: Spontaneous
  Country: PL (occurrence: PL)
  Receive Date: 20180217
  Receipt Date: 20190711
  Transmission Date: 20191004
  Serious: Yes (Life-Threatening, Hospitalization, Other)
  Sender: FDA-Public Use
  Company Number: PL-MYLANLABS-2018M1010457

PATIENT
  Age: 59 Year
  Sex: Female

DRUGS (10)
  1. MEROPENEM. [Suspect]
     Active Substance: MEROPENEM
     Indication: EVIDENCE BASED TREATMENT
     Dosage: UNK,WITHDRAWN IN 12 AND 13 DAY OF HOSPITALISATION
     Route: 042
  2. MEROPENEM. [Suspect]
     Active Substance: MEROPENEM
     Indication: FASCIITIS
  3. LINEZOLID. [Suspect]
     Active Substance: LINEZOLID
     Indication: PRODUCT USED FOR UNKNOWN INDICATION
     Dosage: 2 MG/ML, UNK, WITHDRAWN IN 12 AND 13 DAY OF HOSPITALIZATION
     Route: 042
  4. MEROPENEM. [Suspect]
     Active Substance: MEROPENEM
     Indication: NECROTISING FASCIITIS
     Dosage: WITHDRAWN IN 12 AND 13 DAY OF HOSPITALISATION
     Route: 042
  5. LINEZOLID. [Suspect]
     Active Substance: LINEZOLID
     Dosage: WITHDRAWN IN 12 AND 13 DAY OF HOSPITALISATION
     Route: 042
  6. CLINDAMYCIN. [Suspect]
     Active Substance: CLINDAMYCIN
     Indication: NECROTISING FASCIITIS
     Dosage: UNK,WITHDRAWN IN 12 AND 13 DAY OF HOSPITALISATION
     Route: 042
  7. XYDALBA [Suspect]
     Active Substance: DALBAVANCIN HYDROCHLORIDE
     Dosage: WITHDRAWN IN 12 AND 13 DAY OF HOSPITALISATION
     Route: 065
  8. DALBAVANCIN. [Concomitant]
     Active Substance: DALBAVANCIN
     Indication: FASCIITIS
     Dosage: UNK
  9. OCTENISEPT                         /00972101/ [Concomitant]
     Indication: SKIN LESION
     Dosage: UNK
     Route: 065
  10. XYDALBA [Suspect]
     Active Substance: DALBAVANCIN HYDROCHLORIDE
     Indication: PRODUCT USED FOR UNKNOWN INDICATION
     Dosage: 1500 MG, UNK WITHDRAWN IN 12 AND 13 DAY OF HOSPITALISATION

REACTIONS (4)
  - Clostridium difficile infection [Recovered/Resolved]
  - Streptococcal infection [Recovered/Resolved with Sequelae]
  - Clostridium difficile colitis [Recovered/Resolved]
  - Drug ineffective [Recovering/Resolving]
